FAERS Safety Report 5693732-9 (Version None)
Quarter: 2008Q2

REPORT INFORMATION
  Report Type: 
  Country: None (occurrence: None)
  Receive Date: 20080403
  Receipt Date: 20080326
  Transmission Date: 20081010
  Serious: Yes (Death, Hospitalization)
  Sender: FDA-Public Use
  Company Number: DE-ROCHE-553417

PATIENT
  Age: 50 Year
  Sex: Male
  Weight: 81.6 kg

DRUGS (11)
  1. CAPECITABINE [Suspect]
     Dosage: 2 WEEK TREATMENT ASND 1 WEEK REST DOSING AMOUNT REPO
     Route: 048
     Dates: start: 20071024, end: 20071107
  2. CAPECITABINE [Suspect]
     Route: 048
     Dates: start: 20071206
  3. ERLOTINIB [Suspect]
     Indication: PANCREATIC CARCINOMA
     Route: 048
     Dates: start: 20071024, end: 20071114
  4. ERLOTINIB [Suspect]
     Route: 048
     Dates: start: 20071206
  5. PANCREASE [Concomitant]
  6. KALINOR BRAUSE [Concomitant]
  7. TRAMADOL HCL [Concomitant]
  8. OPII [Concomitant]
  9. SALVIATHYMOL [Concomitant]
  10. UNSPECIFIED DRUG [Concomitant]
  11. NOVAMIN [Concomitant]
     Dosage: TDD REPORTED AS PRN DRUG NAME REPORTED AS NOVAMIN SULFAT
     Dates: start: 20071001

REACTIONS (2)
  - DEATH [None]
  - DIARRHOEA [None]
